FAERS Safety Report 5387529-7 (Version None)
Quarter: 2007Q3

REPORT INFORMATION
  Report Type: 
  Country: None (occurrence: None)
  Receive Date: 20070712
  Receipt Date: 20070628
  Transmission Date: 20080115
  Serious: Yes (Other)
  Sender: FDA-Public Use
  Company Number: ACO_00358_2007

PATIENT
  Age: 27 Year
  Sex: Male

DRUGS (5)
  1. TIZANIDINE HCL [Suspect]
     Indication: MUSCLE SPASMS
     Dosage: (4 MG 1X/8 HOURS ORAL)
     Route: 048
     Dates: start: 20070501
  2. CATAFLAM /00372302/ (DICLOFENAC SODIUM) [Suspect]
     Indication: PAIN
     Dosage: (50 MG PRN DAILY ORAL)
     Route: 048
  3. NIMOTOP (UNKNOWN) [Concomitant]
  4. RANTIDINE (UNKNOWN) [Concomitant]
  5. DORIXINA RELAX (UNKNOWN) [Concomitant]

REACTIONS (2)
  - AUTONOMIC NERVOUS SYSTEM IMBALANCE [None]
  - HYPERTENSION [None]
